FAERS Safety Report 7579095-2 (Version None)
Quarter: 2011Q2

REPORT INFORMATION
  Report Type: 
  Country: None (occurrence: None)
  Receive Date: 20110628
  Receipt Date: 20110620
  Transmission Date: 20111010
  Serious: Yes (Other)
  Sender: FDA-Public Use
  Company Number: US-PFIZER INC-HQWYE001703OCT03

PATIENT
  Sex: Female
  Weight: 53 kg

DRUGS (2)
  1. PREMPRO [Suspect]
     Indication: HORMONE REPLACEMENT THERAPY
     Dosage: ^2.5MG^
     Route: 048
     Dates: start: 19960101, end: 20010101
  2. PREMPRO [Suspect]
     Dosage: .625/2.5MG
     Route: 048
     Dates: start: 19990101, end: 20010101

REACTIONS (1)
  - BREAST CANCER METASTATIC [None]
